FAERS Safety Report 7275697-1 (Version None)
Quarter: 2011Q1

REPORT INFORMATION
  Report Type: 
  Country: None (occurrence: None)
  Receive Date: 20110204
  Receipt Date: 20110202
  Transmission Date: 20110831
  Serious: Yes (Other)
  Sender: FDA-Public Use
  Company Number: US-PFIZER INC-2011024410

PATIENT
  Sex: Female
  Weight: 95.238 kg

DRUGS (1)
  1. ADVIL [Suspect]
     Indication: DYSMENORRHOEA
     Dosage: 200 MG, UNK
     Route: 048
     Dates: start: 20100101, end: 20110101

REACTIONS (6)
  - WHEEZING [None]
  - DYSPNOEA [None]
  - COUGH [None]
  - CHOKING [None]
  - DYSPHAGIA [None]
  - DRY MOUTH [None]
